FAERS Safety Report 7101989-2 (Version None)
Quarter: 2010Q4

REPORT INFORMATION
  Report Type: 
  Country: None (occurrence: None)
  Receive Date: 20101115
  Receipt Date: 20101102
  Transmission Date: 20110411
  Serious: Yes (Hospitalization)
  Sender: FDA-Public Use
  Company Number: US-ELI_LILLY_AND_COMPANY-US201008004542

PATIENT
  Sex: Female
  Weight: 68.934 kg

DRUGS (3)
  1. BYETTA [Suspect]
     Indication: TYPE 2 DIABETES MELLITUS
     Dosage: 10 UG, DAILY (1/D)
     Route: 058
  2. GLUCOPHAGE [Concomitant]
  3. TYLENOL (CAPLET) [Concomitant]

REACTIONS (7)
  - ASPIRATION [None]
  - KNEE ARTHROPLASTY [None]
  - NAUSEA [None]
  - OXYGEN SATURATION DECREASED [None]
  - PNEUMONIA ASPIRATION [None]
  - TRANSFUSION [None]
  - VOMITING [None]
